FAERS Safety Report 9881115 (Version 1)
Quarter: 2014Q1

REPORT INFORMATION
  Report Type: Spontaneous
  Country: US (occurrence: US)
  Receive Date: 20140207
  Receipt Date: 20140207
  Transmission Date: 20141002
  Serious: No
  Sender: FDA-Public Use
  Company Number: US-PFIZER INC-2014034217

PATIENT
  Age: 51 Year
  Sex: Female
  Weight: 113.38 kg

DRUGS (2)
  1. LYRICA [Suspect]
     Dosage: UNK
  2. LYRICA [Suspect]
     Dosage: UNK (DOSE INCREASED)

REACTIONS (5)
  - Muscle spasms [Unknown]
  - Muscle tightness [Unknown]
  - Muscle contracture [Unknown]
  - Gait disturbance [Unknown]
  - Intervertebral disc protrusion [Unknown]
